FAERS Safety Report 8651367 (Version 2)
Quarter: 2012Q4

REPORT INFORMATION
  Report Type: Report from Study
  Country: US (occurrence: US)
  Receive Date: 20120706
  Receipt Date: 20121004
  Transmission Date: 20130627
  Serious: Yes (Other)
  Sender: FDA-Public Use
  Company Number: US-BIOMARINP-002645

PATIENT
  Age: 24 Year
  Sex: Female

DRUGS (1)
  1. NAGLAZYME [Suspect]
     Indication: MUCOPOLYSACCHARIDOSIS VI
     Route: 041
     Dates: start: 20050722

REACTIONS (8)
  - Ventricular extrasystoles [Not Recovered/Not Resolved]
  - Blood magnesium decreased [Unknown]
  - Polyuria [Unknown]
  - Infusion related reaction [Unknown]
  - Bradycardia [None]
  - Ventricular extrasystoles [None]
  - Heart rate increased [None]
  - Cardiomegaly [None]
